FAERS Safety Report 8414651-0 (Version None)
Quarter: 2012Q2

REPORT INFORMATION
  Report Type: 
  Country: None (occurrence: None)
  Receive Date: 20120605
  Receipt Date: 20120601
  Transmission Date: 20120825
  Serious: Yes (Hospitalization)
  Sender: FDA-Public Use
  Company Number: FR-PFIZER INC-2012131907

PATIENT
  Age: 37 Year
  Sex: Female

DRUGS (4)
  1. ZANTAC [Concomitant]
     Dosage: UNK
     Dates: start: 20120220
  2. TAXOTERE [Suspect]
     Indication: BREAST CANCER
     Dosage: 200 MG, 1X/DAY
     Route: 042
     Dates: start: 20120220, end: 20120220
  3. POLARAMINE [Concomitant]
     Dosage: UNK
     Dates: start: 20120220
  4. MEDROL [Suspect]
     Indication: PREMEDICATION
     Dosage: 100 MG, 1X/DAY
     Route: 048
     Dates: start: 20120220, end: 20120220

REACTIONS (4)
  - ASTHENIA [None]
  - DIZZINESS [None]
  - MYALGIA [None]
  - ERYTHEMA [None]
